FAERS Safety Report 24666239 (Version 1)
Quarter: 2024Q4

REPORT INFORMATION
  Report Type: Spontaneous
  Country: CA (occurrence: CA)
  Receive Date: 20241126
  Receipt Date: 20241126
  Transmission Date: 20250115
  Serious: Yes (Other)
  Sender: CARA THERAPEUTICS
  Company Number: CA-CARA THERAPEUTICS, INC.-2024-00525-CA

PATIENT

DRUGS (1)
  1. KORSUVA [Suspect]
     Active Substance: DIFELIKEFALIN ACETATE
     Indication: Pruritus

REACTIONS (1)
  - Pemphigoid [Unknown]
